FAERS Safety Report 13263874 (Version 1)
Quarter: 2017Q1

REPORT INFORMATION
  Report Type: Spontaneous
  Country: US (occurrence: US)
  Receive Date: 20170223
  Receipt Date: 20170223
  Transmission Date: 20170428
  Serious: No
  Sender: FDA-Public Use
  Company Number: US-PFIZER INC-2017079011

PATIENT
  Age: 56 Year
  Sex: Male
  Weight: 83.91 kg

DRUGS (1)
  1. LYRICA [Suspect]
     Active Substance: PREGABALIN

REACTIONS (5)
  - Dry throat [Unknown]
  - Nasal congestion [Unknown]
  - Somnolence [Unknown]
  - Headache [Unknown]
  - Dry mouth [Unknown]
